FAERS Safety Report 7314655-5 (Version None)
Quarter: 2011Q1

REPORT INFORMATION
  Report Type: 
  Country: None (occurrence: None)
  Receive Date: 20110225
  Receipt Date: 20101112
  Transmission Date: 20110831
  Serious: No
  Sender: FDA-Public Use
  Company Number: US-MYLANLABS-2010S1019977

PATIENT
  Age: 17 Year
  Sex: Male
  Weight: 53.52 kg

DRUGS (2)
  1. AMNESTEEM [Suspect]
     Indication: ACNE CYSTIC
     Route: 048
     Dates: start: 20100517, end: 20101026
  2. AMNESTEEM [Suspect]
     Route: 048
     Dates: start: 20100517, end: 20101026

REACTIONS (1)
  - DEPRESSION [None]
